FAERS Safety Report 8209131-1 (Version None)
Quarter: 2012Q1

REPORT INFORMATION
  Report Type: 
  Country: None (occurrence: None)
  Receive Date: 20120314
  Receipt Date: 20100917
  Transmission Date: 20120608
  Serious: Yes (Hospitalization)
  Sender: FDA-Public Use
  Company Number: US-BAYER-201027024NA

PATIENT
  Age: 28 Year
  Sex: Female
  Weight: 68 kg

DRUGS (8)
  1. COUMADIN [Concomitant]
  2. PERCOCET [Concomitant]
  3. NSAID'S [Concomitant]
  4. TYLENOL [Concomitant]
  5. YASMIN [Suspect]
     Indication: CONTRACEPTION
     Route: 048
     Dates: start: 20080601
  6. OXYCET [Concomitant]
  7. TYLENOL [Concomitant]
  8. DROSPIRENONE AND ETHINYL ESTRADIOL [Suspect]
     Indication: CONTRACEPTION
     Route: 048
     Dates: start: 20080701, end: 20081101

REACTIONS (7)
  - PULMONARY EMBOLISM [None]
  - COUGH [None]
  - SINUSITIS [None]
  - BACK PAIN [None]
  - DYSPNOEA [None]
  - PNEUMONIA [None]
  - BRONCHITIS [None]
